FAERS Safety Report 4771607-7 (Version None)
Quarter: 2005Q3

REPORT INFORMATION
  Report Type: 
  Country: None (occurrence: None)
  Receive Date: 20050913
  Receipt Date: 20050913
  Transmission Date: 20060218
  Serious: Yes (Hospitalization)
  Sender: FDA-Public Use
  Company Number: None

PATIENT
  Sex: Male
  Weight: 67.72 kg

DRUGS (2)
  1. DAUNOMYCIN [Suspect]
     Indication: ACUTE MYELOID LEUKAEMIA
     Dosage: SEE IMAGE
     Route: 042
     Dates: start: 20050729, end: 20050731
  2. CYTARABINE [Suspect]
     Dosage: SEE IMAGE
     Route: 042
     Dates: start: 20050729, end: 20050804

REACTIONS (9)
  - FEBRILE NEUTROPENIA [None]
  - FUNGAL RASH [None]
  - JAUNDICE [None]
  - LABORATORY TEST ABNORMAL [None]
  - MENTAL STATUS CHANGES [None]
  - PHARYNGOLARYNGEAL PAIN [None]
  - RASH [None]
  - RESPIRATORY DISORDER [None]
  - SYSTEMIC MYCOSIS [None]
